FAERS Safety Report 5151413-4 (Version None)
Quarter: 2006Q4

REPORT INFORMATION
  Report Type: 
  Country: None (occurrence: None)
  Receive Date: 20061115
  Receipt Date: 20060929
  Transmission Date: 20070319
  Serious: Yes (Hospitalization)
  Sender: FDA-Public Use
  Company Number: US-ELI_LILLY_AND_COMPANY-US200610000266

PATIENT
  Age: 44 Year
  Sex: Female

DRUGS (7)
  1. OXYCONTIN [Concomitant]
     Indication: BACK PAIN
     Dosage: 40 MG, 3/D
  2. AMBIEN [Concomitant]
     Dosage: 20 MG, EACH EVENING
  3. CYMBALTA [Suspect]
     Indication: BIPOLAR II DISORDER
  4. GEODON [Concomitant]
  5. XANAX                                   /USA/ [Concomitant]
     Dosage: 0.5 MG, OTHER
  6. TRILEPTAL [Concomitant]
  7. LAMICTAL [Concomitant]

REACTIONS (2)
  - ENCEPHALOPATHY [None]
  - RENAL FAILURE [None]
